FAERS Safety Report 23885486 (Version 1)
Quarter: 2024Q2

REPORT INFORMATION
  Report Type: Spontaneous
  Country: VN (occurrence: VN)
  Receive Date: 20240522
  Receipt Date: 20240522
  Transmission Date: 20240716
  Serious: Yes (Hospitalization)
  Sender: FDA-Public Use
  Company Number: VN-002147023-NVSC2024VN105076

PATIENT

DRUGS (7)
  1. RUXOLITINIB [Suspect]
     Active Substance: RUXOLITINIB
     Indication: Myelofibrosis
     Dosage: 10 MG (TWICE A DAY)
     Route: 065
     Dates: start: 20240212
  2. RUXOLITINIB [Suspect]
     Active Substance: RUXOLITINIB
     Dosage: 5 MG (TWICE A DAY)
     Route: 065
     Dates: start: 20240220
  3. RUXOLITINIB [Suspect]
     Active Substance: RUXOLITINIB
     Dosage: 10 MG (TWICE A DAY)
     Route: 065
     Dates: start: 20240229
  4. RUXOLITINIB [Suspect]
     Active Substance: RUXOLITINIB
     Dosage: 15 MG (TWICE A DAY)
     Route: 065
     Dates: start: 20240304
  5. RUXOLITINIB [Suspect]
     Active Substance: RUXOLITINIB
     Dosage: 20 MG (TWICE A DAY)
     Route: 065
     Dates: start: 20240307
  6. RUXOLITINIB [Suspect]
     Active Substance: RUXOLITINIB
     Dosage: 15 MG (TWICE A DAY)
     Route: 065
     Dates: start: 20240312
  7. RUXOLITINIB [Suspect]
     Active Substance: RUXOLITINIB
     Dosage: 20 MG (TWICE A DAY)
     Route: 065
     Dates: start: 20240326

REACTIONS (10)
  - Fatigue [Not Recovered/Not Resolved]
  - White blood cell count increased [Unknown]
  - Hepatomegaly [Unknown]
  - Eating disorder [Not Recovered/Not Resolved]
  - Contusion [Unknown]
  - Hepatitis B core antigen positive [Unknown]
  - Thrombocytopenia [Unknown]
  - Dizziness [Unknown]
  - Splenomegaly [Unknown]
  - Off label use [Unknown]

NARRATIVE: CASE EVENT DATE: 20240201
